FAERS Safety Report 6368876-9 (Version None)
Quarter: 2009Q3

REPORT INFORMATION
  Report Type: 
  Country: None (occurrence: None)
  Receive Date: 20090922
  Receipt Date: 20090909
  Transmission Date: 20100115
  Serious: Yes (Death)
  Sender: FDA-Public Use
  Company Number: KR-PFIZER INC-2009250328

PATIENT
  Age: 16 Year

DRUGS (8)
  1. VORICONAZOLE [Suspect]
     Indication: ASPERGILLOSIS
     Dosage: 250 MG, 2X/DAY
     Route: 042
     Dates: start: 20071219, end: 20080110
  2. COLISTIN [Concomitant]
     Route: 042
     Dates: start: 20071220, end: 20080108
  3. SYNERCID [Concomitant]
     Route: 042
     Dates: start: 20071226, end: 20080109
  4. LINEZOLID [Concomitant]
     Route: 042
     Dates: start: 20071219, end: 20080109
  5. POTASSIUM CHLORIDE [Concomitant]
     Route: 042
     Dates: start: 20071110, end: 20080110
  6. LENOGRASTIM [Concomitant]
     Route: 058
     Dates: start: 20071220, end: 20080102
  7. FUROSEMIDE [Concomitant]
     Route: 042
     Dates: start: 20071217, end: 20071217
  8. FUROSEMIDE [Concomitant]
     Route: 042
     Dates: start: 20071223, end: 20071223

REACTIONS (3)
  - METABOLIC ACIDOSIS [None]
  - PLEURAL EFFUSION [None]
  - SEPTIC SHOCK [None]
